FAERS Safety Report 7134427-4 (Version None)
Quarter: 2010Q4

REPORT INFORMATION
  Report Type: 
  Country: None (occurrence: None)
  Receive Date: 20101203
  Receipt Date: 20101125
  Transmission Date: 20110411
  Serious: Yes (Other)
  Sender: FDA-Public Use
  Company Number: PHFR2010GB03785

PATIENT
  Sex: Male

DRUGS (1)
  1. CLOZARIL [Suspect]
     Indication: SCHIZOPHRENIA
     Dosage: UNK
     Route: 048
     Dates: start: 20040608

REACTIONS (6)
  - ANAEMIA [None]
  - COLON CANCER [None]
  - LARGE INTESTINE PERFORATION [None]
  - MASS EXCISION [None]
  - SURGERY [None]
  - WEIGHT DECREASED [None]
